FAERS Safety Report 5278413-8 (Version None)
Quarter: 2007Q1

REPORT INFORMATION
  Report Type: 
  Country: None (occurrence: None)
  Receive Date: 20070328
  Receipt Date: 20070323
  Transmission Date: 20070707
  Serious: Yes (Hospitalization)
  Sender: FDA-Public Use
  Company Number: NO-BRISTOL-MYERS SQUIBB COMPANY-13727359

PATIENT
  Age: 52 Year
  Sex: Female

DRUGS (5)
  1. BLINDED: IPILIMUMAB [Suspect]
     Indication: MALIGNANT MELANOMA
     Route: 042
     Dates: start: 20070110, end: 20070314
  2. BLINDED: PLACEBO [Suspect]
     Indication: MALIGNANT MELANOMA
     Route: 042
     Dates: start: 20070110, end: 20070314
  3. DTIC-DOME [Suspect]
     Indication: MALIGNANT MELANOMA
     Route: 042
     Dates: start: 20070110, end: 20070221
  4. PARALGIN FORTE [Concomitant]
     Dates: start: 20070131
  5. ETHYLMORPHINE HCL [Concomitant]
     Dates: start: 20070314

REACTIONS (1)
  - ABDOMINAL PAIN [None]
